FAERS Safety Report 5129584-5 (Version None)
Quarter: 2006Q4

REPORT INFORMATION
  Report Type: 
  Country: None (occurrence: None)
  Receive Date: 20061012
  Receipt Date: 20061005
  Transmission Date: 20070319
  Serious: Yes (Hospitalization)
  Sender: FDA-Public Use
  Company Number: 148398USA

PATIENT
  Age: 60 Year
  Sex: Female

DRUGS (2)
  1. COPAXONE [Suspect]
     Indication: MULTIPLE SCLEROSIS
     Dates: start: 20010101, end: 20030101
  2. BETASERON [Suspect]
     Indication: MULTIPLE SCLEROSIS
     Dosage: 8 MIU EVERY OTHER DAY, SUBCUTANEOUS
     Route: 058
     Dates: start: 19991230, end: 20001227

REACTIONS (1)
  - MENINGIOMA [None]
